FAERS Safety Report 8593330 (Version 2)
Quarter: 2013Q2

REPORT INFORMATION
  Report Type: Spontaneous
  Country: HR (occurrence: HR)
  Receive Date: 20120604
  Receipt Date: 20130409
  Transmission Date: 20140414
  Serious: Yes (Hospitalization, Other)
  Sender: FDA-Public Use
  Company Number: HR-JNJFOC-20120519681

PATIENT
  Age: 30 Year
  Sex: Male

DRUGS (6)
  1. RISPOLEPT CONSTA [Suspect]
     Indication: SCHIZOPHRENIA
     Route: 030
  2. LEPONEX [Suspect]
     Indication: SCHIZOPHRENIA
     Route: 065
  3. NORMABEL [Suspect]
     Indication: SCHIZOPHRENIA
     Dosage: 10MG IF NEEDED
     Route: 065
  4. NORMABEL [Suspect]
     Indication: SCHIZOPHRENIA
     Route: 065
  5. DEPAKINE CHRONO [Suspect]
     Indication: SCHIZOPHRENIA
     Route: 065
  6. DEPAKINE CHRONO [Suspect]
     Indication: SCHIZOPHRENIA
     Route: 065

REACTIONS (5)
  - Schizophrenia [Recovered/Resolved]
  - Psychomotor skills impaired [Recovered/Resolved]
  - Loss of consciousness [Recovered/Resolved]
  - Asthenia [Recovered/Resolved]
  - Feeling hot [Recovered/Resolved]
